FAERS Safety Report 9150182 (Version 1)
Quarter: 2013Q1

REPORT INFORMATION
  Report Type: Spontaneous
  Country: GB (occurrence: GB)
  Receive Date: 20130308
  Receipt Date: 20130308
  Transmission Date: 20140127
  Serious: Yes (Other)
  Sender: FDA-Public Use
  Company Number: GB-009507513-1303GBR001526

PATIENT
  Age: 58 Year
  Sex: Female
  Weight: 78.1 kg

DRUGS (2)
  1. TRUSOPT [Suspect]
     Indication: INTRAOCULAR PRESSURE INCREASED
     Dosage: 2 DF, QD
     Route: 047
     Dates: start: 200602, end: 200810
  2. [THERAPY UNSPECIFIED] [Concomitant]
     Indication: GLAUCOMA

REACTIONS (3)
  - Diplopia [Recovered/Resolved]
  - Pruritus [Recovered/Resolved]
  - Dermatitis [Recovered/Resolved]
